FAERS Safety Report 6248674-7 (Version None)
Quarter: 2009Q2

REPORT INFORMATION
  Report Type: 
  Country: None (occurrence: None)
  Receive Date: 20090624
  Receipt Date: 20090624
  Transmission Date: 20091009
  Serious: Yes (Life-Threatening)
  Sender: FDA-Public Use
  Company Number: None

PATIENT
  Age: 74 Year
  Sex: Male
  Weight: 57 kg

DRUGS (5)
  1. REGULAR INSULIN [Suspect]
     Indication: TYPE 2 DIABETES MELLITUS
     Dosage: 3U SQ Q6 HRS W/TEN
     Dates: start: 20090511
  2. INSULIN ASPART [Suspect]
     Indication: TYPE 2 DIABETES MELLITUS
     Dosage: SSI-M
     Dates: start: 20090512, end: 20090513
  3. EPOEGEN [Concomitant]
  4. LANSOPRAZOLE [Concomitant]
  5. OXYCODONE [Concomitant]

REACTIONS (3)
  - BLOOD GLUCOSE DECREASED [None]
  - BLOOD GLUCOSE INCREASED [None]
  - SOMNOLENCE [None]
